FAERS Safety Report 5455477-X (Version None)
Quarter: 2007Q3

REPORT INFORMATION
  Report Type: 
  Country: None (occurrence: None)
  Receive Date: 20070918
  Receipt Date: 20061102
  Transmission Date: 20080115
  Serious: No
  Sender: FDA-Public Use
  Company Number: US-ASTRAZENECA-2006UW21270

PATIENT
  Age: 20 Year
  Sex: Female

DRUGS (4)
  1. SEROQUEL [Suspect]
     Indication: PSYCHOTIC DISORDER
     Route: 048
  2. SEROQUEL [Suspect]
     Route: 048
  3. DEPAKOTE ER [Concomitant]
     Route: 048
  4. PAXIL [Concomitant]
     Route: 048

REACTIONS (3)
  - AGITATION [None]
  - RESTLESSNESS [None]
  - VERBAL ABUSE [None]
